FAERS Safety Report 11007178 (Version 1)
Quarter: 2015Q2

REPORT INFORMATION
  Report Type: Report from Study
  Country: CA (occurrence: CA)
  Receive Date: 20150409
  Receipt Date: 20150409
  Transmission Date: 20150821
  Serious: Yes (Hospitalization)
  Sender: FDA-Public Use
  Company Number: CA-INTERMUNE, INC.-201504IM013023

PATIENT
  Sex: Female

DRUGS (17)
  1. CLONAZPAM [Concomitant]
  2. OLANZAPINE. [Concomitant]
     Active Substance: OLANZAPINE
  3. ELAVIL [Concomitant]
     Active Substance: AMITRIPTYLINE HYDROCHLORIDE
  4. CLAVULIN [Concomitant]
     Active Substance: AMOXICILLIN\CLAVULANIC ACID
  5. TECTA [Concomitant]
     Active Substance: PANTOPRAZOLE MAGNESIUM
  6. SEEBRI [Concomitant]
     Active Substance: GLYCOPYRRONIUM
  7. LEVOCARB [Concomitant]
     Active Substance: CARBIDOPA\LEVODOPA
  8. QUIETAPINE [Concomitant]
  9. ATORVASTATIN [Concomitant]
     Active Substance: ATORVASTATIN
  10. METFORMIN [Concomitant]
     Active Substance: METFORMIN HYDROCHLORIDE
  11. VENTOLIN [Concomitant]
     Active Substance: ALBUTEROL SULFATE
  12. SYMBICORT [Concomitant]
     Active Substance: BUDESONIDE\FORMOTEROL FUMARATE DIHYDRATE
  13. NAPROXEN. [Concomitant]
     Active Substance: NAPROXEN
  14. ESBRIET [Suspect]
     Active Substance: PIRFENIDONE
     Indication: IDIOPATHIC PULMONARY FIBROSIS
     Dosage: 801 MG
     Route: 048
  15. VENLAFEXINE [Concomitant]
  16. OXYCODONE HYDROCHLORIDE AND ACETAMINOPHEN [Concomitant]
     Active Substance: ACETAMINOPHEN\OXYCODONE HYDROCHLORIDE
  17. PREGLABIN [Concomitant]

REACTIONS (3)
  - Blood glucose decreased [Unknown]
  - Dizziness [Unknown]
  - Nausea [Unknown]
